FAERS Safety Report 17712678 (Version 1)
Quarter: 2020Q2

REPORT INFORMATION
  Report Type: Report from Study
  Country: CA (occurrence: CA)
  Receive Date: 20200427
  Receipt Date: 20200427
  Transmission Date: 20200714
  Serious: Yes (Other)
  Sender: FDA-Public Use
  Company Number: CA-JNJFOC-20200338098

PATIENT
  Age: 74 Year
  Sex: Male
  Weight: 118.3 kg

DRUGS (1)
  1. REMICADE [Suspect]
     Active Substance: INFLIXIMAB
     Indication: CROHN^S DISEASE
     Dosage: ON 20-APR-2020, THE PATIENT RECEIVED LATEST DOSE OF (4TH) OF INFLIXIMAB RECOMBINANT OF 600 MG.
     Route: 042
     Dates: start: 20191219

REACTIONS (6)
  - Pyrexia [Unknown]
  - Tachycardia [Not Recovered/Not Resolved]
  - Pruritus [Not Recovered/Not Resolved]
  - Chills [Unknown]
  - Infusion related reaction [Not Recovered/Not Resolved]
  - Headache [Not Recovered/Not Resolved]

NARRATIVE: CASE EVENT DATE: 20200420
